FAERS Safety Report 4452452-9 (Version None)
Quarter: 2004Q3

REPORT INFORMATION
  Report Type: 
  Country: None (occurrence: None)
  Receive Date: 20040917
  Receipt Date: 20040825
  Transmission Date: 20050211
  Serious: Yes (Hospitalization)
  Sender: FDA-Public Use
  Company Number: PHEH2004US09181

PATIENT
  Age: 63 Year
  Sex: Female

DRUGS (4)
  1. ZELNORM [Suspect]
     Indication: IRRITABLE BOWEL SYNDROME
     Dosage: 6 MG, QD
     Route: 048
     Dates: start: 20010601, end: 20040808
  2. ZELNORM [Suspect]
     Dosage: 2 X 6 MG Q/AM
     Route: 048
     Dates: start: 20040809, end: 20040819
  3. ZESTRIL [Concomitant]
     Indication: HYPERTENSION
  4. NEXIUM [Concomitant]
     Indication: GASTROOESOPHAGEAL REFLUX DISEASE
     Dates: start: 20040811

REACTIONS (11)
  - ABDOMINAL DISTENSION [None]
  - ABDOMINAL PAIN [None]
  - COLITIS ISCHAEMIC [None]
  - DIARRHOEA [None]
  - GASTROINTESTINAL TRACT MUCOSAL DISCOLOURATION [None]
  - HAEMATOCHEZIA [None]
  - INTESTINAL HAEMORRHAGE [None]
  - INTESTINAL ULCER [None]
  - RECTAL HAEMORRHAGE [None]
  - SIGMOIDOSCOPY ABNORMAL [None]
  - VOMITING [None]
